FAERS Safety Report 9838899 (Version 1)
Quarter: 2014Q1

REPORT INFORMATION
  Report Type: Spontaneous
  Country: US (occurrence: None)
  Receive Date: 20140117
  Receipt Date: 20140117
  Transmission Date: 20141002
  Serious: Yes (Other)
  Sender: FDA-Public Use
  Company Number: None

PATIENT
  Age: 53 Year
  Sex: Female
  Weight: 102.51 kg

DRUGS (1)
  1. METOPROLOL SUCCINATE [Suspect]
     Dates: start: 20091217, end: 20121219

REACTIONS (2)
  - Chest pain [None]
  - Hypersensitivity [None]
